FAERS Safety Report 6668236-7 (Version None)
Quarter: 2010Q2

REPORT INFORMATION
  Report Type: 
  Country: None (occurrence: None)
  Receive Date: 20100406
  Receipt Date: 20100323
  Transmission Date: 20101027
  Serious: Yes (Hospitalization)
  Sender: FDA-Public Use
  Company Number: ZA-JNJFOC-20100305254

PATIENT
  Age: 75 Year
  Sex: Female

DRUGS (5)
  1. WINTHROP [Suspect]
     Indication: SKIN ULCER
     Route: 048
  2. WINTHROP [Suspect]
     Indication: WOUND
     Route: 048
  3. ATORVASTATIN CALCIUM [Concomitant]
     Indication: HYPERCHOLESTEROLAEMIA
     Route: 065
  4. URINARY ANTISPASMODICS [Concomitant]
     Indication: URINARY INCONTINENCE
     Route: 065
  5. ALL OTHER THERAPEUTIC PRODUCTS [Concomitant]
     Route: 065

REACTIONS (4)
  - CHEST DISCOMFORT [None]
  - DRY MOUTH [None]
  - HYPERSENSITIVITY [None]
  - SWOLLEN TONGUE [None]
